FAERS Safety Report 13402717 (Version 1)
Quarter: 2017Q2

REPORT INFORMATION
  Report Type: Spontaneous
  Country: CM (occurrence: CM)
  Receive Date: 20170404
  Receipt Date: 20170404
  Transmission Date: 20170830
  Serious: Yes (Other)
  Sender: FDA-Public Use
  Company Number: PHHY2017CM046824

PATIENT
  Age: 43 Year
  Sex: Male

DRUGS (1)
  1. COLESTOP (ATORVASTATIN) [Suspect]
     Active Substance: ATORVASTATIN
     Indication: PROPHYLAXIS
     Dosage: 10 MG, QD
     Route: 048

REACTIONS (3)
  - Asthenia [Unknown]
  - Myocardial stunning [Unknown]
  - Dizziness [Unknown]

NARRATIVE: CASE EVENT DATE: 20170318
